FAERS Safety Report 8282771-X (Version None)
Quarter: 2012Q2

REPORT INFORMATION
  Report Type: 
  Country: None (occurrence: None)
  Receive Date: 20120413
  Receipt Date: 20120410
  Transmission Date: 20120825
  Serious: No
  Sender: FDA-Public Use
  Company Number: US-PFIZER INC-2012007100

PATIENT
  Sex: Male

DRUGS (2)
  1. EFFEXOR XR [Suspect]
     Indication: DEPRESSION
     Dosage: 75 MG, 2X/DAY
     Route: 048
     Dates: start: 20100315
  2. EFFEXOR XR [Suspect]
     Indication: ANXIETY

REACTIONS (3)
  - DRUG WITHDRAWAL SYNDROME [None]
  - PANIC ATTACK [None]
  - ANXIETY [None]
